FAERS Safety Report 15488576 (Version 5)
Quarter: 2020Q4

REPORT INFORMATION
  Report Type: Spontaneous
  Country: US (occurrence: US)
  Receive Date: 20181011
  Receipt Date: 20201028
  Transmission Date: 20210113
  Serious: No
  Sender: FDA-Public Use
  Company Number: US-PFIZER INC-2018407771

PATIENT
  Age: 78 Year
  Sex: Female
  Weight: 63 kg

DRUGS (5)
  1. XELJANZ [Suspect]
     Active Substance: TOFACITINIB CITRATE
     Indication: COLITIS ULCERATIVE
     Dosage: 10 MG, 1X/DAY
     Route: 048
     Dates: start: 201809, end: 2018
  2. XELJANZ [Suspect]
     Active Substance: TOFACITINIB CITRATE
     Dosage: 10 MG, DAILY
  3. SULFASALAZINE. [Concomitant]
     Active Substance: SULFASALAZINE
     Indication: COLITIS ULCERATIVE
     Dosage: 20 MG, 2X/DAY (4 IN MORNING AT 4 NIGHTS)
  4. XELJANZ [Suspect]
     Active Substance: TOFACITINIB CITRATE
     Dosage: 10 MG, 2X/DAY(TAKE 1 TABLET(S) TWICE A DAY BY ORAL ROUTE FOR 30 DAYS)
     Route: 048
     Dates: start: 201810
  5. XELJANZ [Suspect]
     Active Substance: TOFACITINIB CITRATE
     Dosage: 5 MG, DAILY (TAKES 5MG DAILY)

REACTIONS (6)
  - Diarrhoea [Not Recovered/Not Resolved]
  - Flatulence [Unknown]
  - Muscle spasms [Unknown]
  - Product dose omission issue [Unknown]
  - Movement disorder [Unknown]
  - Drug ineffective [Unknown]

NARRATIVE: CASE EVENT DATE: 201810
